FAERS Safety Report 15967815 (Version 2)
Quarter: 2019Q1

REPORT INFORMATION
  Report Type: Report from Study
  Country: PL (occurrence: PL)
  Receive Date: 20190215
  Receipt Date: 20190221
  Transmission Date: 20190418
  Serious: Yes (Life-Threatening, Hospitalization)
  Sender: FDA-Public Use
  Company Number: PL-PFIZER INC-2019067739

PATIENT
  Age: 55 Year
  Sex: Female
  Weight: 60 kg

DRUGS (11)
  1. AMLODIPINUM [Concomitant]
     Indication: HYPERTENSION
     Dosage: UNK
     Dates: start: 20170116
  2. FEROPLEX [Concomitant]
     Indication: ANAEMIA PROPHYLAXIS
     Dosage: UNK
     Dates: start: 20181022
  3. LOSARTANUM KALIUM [Concomitant]
     Indication: HYPERTENSION
     Dosage: UNK
     Dates: start: 20170116
  4. VALSACOR [Concomitant]
     Active Substance: VALSARTAN
     Indication: HYPERTENSION
     Dosage: UNK
     Dates: start: 20180425
  5. ACIDUM FOLICUM [Concomitant]
     Active Substance: FOLIC ACID
     Indication: RHEUMATOID ARTHRITIS
     Dosage: UNK
     Dates: start: 20141124
  6. TOFACITINIB CITRATE [Suspect]
     Active Substance: TOFACITINIB CITRATE
     Indication: RHEUMATOID ARTHRITIS
     Dosage: 10 MG, 2X/DAY, MOST RECENT DOSE BEFORE THE EVENT: DAILY DOSE 20MG
     Route: 048
     Dates: start: 20150513, end: 20190116
  7. METYPRED [Concomitant]
     Active Substance: METHYLPREDNISOLONE
     Indication: RHEUMATOID ARTHRITIS
     Dosage: UNK
     Dates: start: 20141121
  8. BISOPROLOLI FUMARAS (2:1) [Concomitant]
     Indication: HYPERTENSION
     Dosage: UNK
     Dates: start: 2012
  9. SPIRONOLACTONUM [Concomitant]
     Indication: HYPERTENSION
     Dosage: UNK
     Dates: start: 20140723
  10. BETASERC [Concomitant]
     Active Substance: BETAHISTINE
     Indication: ATRIAL FIBRILLATION
     Dosage: UNK
     Dates: start: 20180424
  11. XARELTO [Concomitant]
     Active Substance: RIVAROXABAN
     Indication: ATRIAL FIBRILLATION
     Dosage: UNK
     Dates: start: 20180425

REACTIONS (1)
  - Cardiac arrest [Recovered/Resolved]

NARRATIVE: CASE EVENT DATE: 20190116
